FAERS Safety Report 9856487 (Version 2)
Quarter: 2014Q1

REPORT INFORMATION
  Report Type: Spontaneous
  Country: US (occurrence: US)
  Receive Date: 20140130
  Receipt Date: 20140224
  Transmission Date: 20141002
  Serious: Yes (Other)
  Sender: FDA-Public Use
  Company Number: CHPA2014US001359

PATIENT
  Age: 56 Year
  Sex: Female

DRUGS (2)
  1. PRIVATE LABEL [Suspect]
     Indication: SMOKING CESSATION THERAPY
     Dosage: 14 MG, QD
     Route: 062
     Dates: start: 201310, end: 201311
  2. PRIVATE LABEL [Suspect]
     Dosage: 14 MG, QD
     Route: 062
     Dates: start: 2012, end: 201211

REACTIONS (7)
  - Hernia [Recovered/Resolved]
  - Gastric disorder [Not Recovered/Not Resolved]
  - Dental caries [Recovered/Resolved]
  - Hyperhidrosis [Recovered/Resolved]
  - Underdose [Unknown]
  - Wrong technique in drug usage process [Unknown]
  - Drug administered at inappropriate site [Unknown]
